FAERS Safety Report 11334220 (Version 1)
Quarter: 2015Q3

REPORT INFORMATION
  Report Type: Spontaneous
  Country: TR (occurrence: TR)
  Receive Date: 20150803
  Receipt Date: 20150803
  Transmission Date: 20151125
  Serious: Yes (Hospitalization, Other)
  Sender: FDA-Public Use
  Company Number: TR-BAXTER-2015BAX041025

PATIENT
  Age: 62 Year
  Sex: Female

DRUGS (3)
  1. ENDOXAN 1G. IV [Suspect]
     Active Substance: CYCLOPHOSPHAMIDE
     Indication: CROHN^S DISEASE
     Route: 065
  2. METHYLPREDNISOLONE. [Suspect]
     Active Substance: METHYLPREDNISOLONE
     Indication: CROHN^S DISEASE
     Route: 065
  3. MESALAMINE. [Suspect]
     Active Substance: MESALAMINE
     Indication: CROHN^S DISEASE
     Route: 065

REACTIONS (4)
  - Pulmonary embolism [Unknown]
  - Proteinuria [Unknown]
  - Crohn^s disease [Unknown]
  - Kaposi^s sarcoma [Unknown]
